FAERS Safety Report 5181033-7 (Version None)
Quarter: 2006Q4

REPORT INFORMATION
  Report Type: 
  Country: None (occurrence: None)
  Receive Date: 20061220
  Receipt Date: 20061207
  Transmission Date: 20070319
  Serious: Yes (Death)
  Sender: FDA-Public Use
  Company Number: US-ELI_LILLY_AND_COMPANY-US200612001152

PATIENT
  Age: 97 Year
  Sex: Female
  Weight: 54.421 kg

DRUGS (2)
  1. ZYPREXA [Suspect]
     Indication: DEMENTIA
     Dosage: 5 MG, UNK
     Dates: start: 20040101, end: 20050101
  2. ATENOLOL [Concomitant]
     Dates: start: 20040101

REACTIONS (2)
  - DEATH [None]
  - HYPERGLYCAEMIA [None]
